APPROVED DRUG PRODUCT: DOXEPIN HYDROCHLORIDE
Active Ingredient: DOXEPIN HYDROCHLORIDE
Strength: EQ 25MG BASE
Dosage Form/Route: CAPSULE;ORAL
Application: A070973 | Product #001
Applicant: QUANTUM PHARMICS LTD
Approved: Sep 29, 1987 | RLD: No | RS: No | Type: DISCN